FAERS Safety Report 8570517-7 (Version None)
Quarter: 2012Q3

REPORT INFORMATION
  Report Type: 
  Country: None (occurrence: None)
  Receive Date: 20120803
  Receipt Date: 20120723
  Transmission Date: 20120928
  Serious: No
  Sender: FDA-Public Use
  Company Number: US-ASTRAZENECA-2012SE32285

PATIENT
  Age: 35 Year
  Sex: Female

DRUGS (3)
  1. NEXIUM [Suspect]
     Route: 048
  2. SYMBICORT [Suspect]
     Dosage: UNKNOWN
     Route: 055
  3. SEROQUEL [Suspect]
     Indication: BIPOLAR DISORDER
     Route: 048

REACTIONS (2)
  - PNEUMONIA [None]
  - GASTROOESOPHAGEAL REFLUX DISEASE [None]
